FAERS Safety Report 25884444 (Version 1)
Quarter: 2025Q4

REPORT INFORMATION
  Report Type: Spontaneous
  Country: US (occurrence: US)
  Receive Date: 20251006
  Receipt Date: 20251006
  Transmission Date: 20260118
  Serious: Yes (Other)
  Sender: INCYTE
  Company Number: US-EVENT-004510

PATIENT
  Age: 73 Year

DRUGS (5)
  1. OPZELURA [Suspect]
     Active Substance: RUXOLITINIB PHOSPHATE
     Indication: Dermatitis atopic
     Dosage: UNK, QD (IN THE MORNING)
  2. OPZELURA [Suspect]
     Active Substance: RUXOLITINIB PHOSPHATE
     Dosage: UNK, BID
  3. DESONIDE [Concomitant]
     Active Substance: DESONIDE
     Indication: Product used for unknown indication
     Dosage: UNK, QD (IN THE EVENING)
     Route: 065
  4. ZYRTEC [Concomitant]
     Active Substance: CETIRIZINE HYDROCHLORIDE
     Indication: Product used for unknown indication
     Dosage: UNK, QD (IN THE EVENING)
     Route: 065
  5. HYDROXYZINE [Concomitant]
     Active Substance: HYDROXYZINE HYDROCHLORIDE
     Indication: Product used for unknown indication
     Dosage: UNK, QD (IN THE EVENING)
     Route: 065

REACTIONS (3)
  - Squamous cell carcinoma [Unknown]
  - Fatigue [Not Recovered/Not Resolved]
  - Arthropathy [Not Recovered/Not Resolved]
